FAERS Safety Report 18816473 (Version 4)
Quarter: 2021Q1

REPORT INFORMATION
  Report Type: Spontaneous
  Country: US (occurrence: US)
  Receive Date: 20210201
  Receipt Date: 20210309
  Transmission Date: 20210419
  Serious: No
  Sender: FDA-Public Use
  Company Number: US-PFIZER INC-2021075566

PATIENT
  Sex: Female

DRUGS (2)
  1. DEPO?PROVERA [Suspect]
     Active Substance: MEDROXYPROGESTERONE ACETATE
     Dosage: UNK
  2. DEPO?PROVERA [Suspect]
     Active Substance: MEDROXYPROGESTERONE ACETATE
     Indication: CONTRACEPTION
     Dosage: UNK (104 MG/0.65 ML)

REACTIONS (4)
  - Wrong technique in device usage process [Unknown]
  - Syringe issue [Unknown]
  - Needle issue [Unknown]
  - Drug dose omission by device [Unknown]
